FAERS Safety Report 15631210 (Version 1)
Quarter: 2018Q4

REPORT INFORMATION
  Report Type: Spontaneous
  Country: RO (occurrence: RO)
  Receive Date: 20181119
  Receipt Date: 20181119
  Transmission Date: 20190205
  Serious: Yes (Other)
  Sender: FDA-Public Use
  Company Number: RO-SUN PHARMACEUTICAL INDUSTRIES LTD-2018RR-190712

PATIENT
  Age: 87 Year
  Sex: Male

DRUGS (1)
  1. PARACETAMOL TERAPIA 500MG, COMPRIMATE [Suspect]
     Active Substance: ACETAMINOPHEN
     Indication: PRODUCT USED FOR UNKNOWN INDICATION
     Dosage: 2 DF, IN TOTAL
     Route: 065
     Dates: start: 20181101

REACTIONS (3)
  - Eye swelling [Recovering/Resolving]
  - Panic reaction [Recovering/Resolving]
  - Face oedema [Recovering/Resolving]
